FAERS Safety Report 4499088-1 (Version None)
Quarter: 2004Q4

REPORT INFORMATION
  Report Type: 
  Country: None (occurrence: None)
  Receive Date: 20041108
  Receipt Date: 20041025
  Transmission Date: 20050328
  Serious: Yes (Other)
  Sender: FDA-Public Use
  Company Number: HQWYE790130JUN04

PATIENT

DRUGS (1)
  1. EFFEXOR XR [Suspect]
     Dosage: 150 MG , ORAL
     Route: 048

REACTIONS (2)
  - BILE DUCT CANCER [None]
  - BILE DUCT OBSTRUCTION [None]
